FAERS Safety Report 4868138-2 (Version None)
Quarter: 2005Q4

REPORT INFORMATION
  Report Type: 
  Country: None (occurrence: None)
  Receive Date: 20051227
  Receipt Date: 20051219
  Transmission Date: 20060501
  Serious: Yes (Hospitalization)
  Sender: FDA-Public Use
  Company Number: 0512-707

PATIENT
  Age: 91 Year
  Sex: Female
  Weight: 53.5244 kg

DRUGS (2)
  1. ALBUTEROL SULFATE [Suspect]
  2. FLOVENT [Concomitant]

REACTIONS (3)
  - DYSPNOEA [None]
  - FEELING ABNORMAL [None]
  - MALAISE [None]
